FAERS Safety Report 9511667 (Version 1)
Quarter: 2013Q3

REPORT INFORMATION
  Report Type: Spontaneous
  Country: JP (occurrence: JP)
  Receive Date: 20130910
  Receipt Date: 20130910
  Transmission Date: 20140515
  Serious: Yes (Death)
  Sender: FDA-Public Use
  Company Number: JP-ASTELLAS-2013US009552

PATIENT
  Sex: Female

DRUGS (1)
  1. AMBISOME [Suspect]
     Indication: LIFE SUPPORT
     Dosage: 100 MG, UNKNOWN/D
     Route: 065

REACTIONS (1)
  - Interstitial lung disease [Fatal]
